FAERS Safety Report 4599116-9 (Version None)
Quarter: 2005Q1

REPORT INFORMATION
  Report Type: 
  Country: None (occurrence: None)
  Receive Date: 20050302
  Receipt Date: 20050217
  Transmission Date: 20050727
  Serious: Yes (Hospitalization)
  Sender: FDA-Public Use
  Company Number: SP00408

PATIENT
  Age: 58 Year
  Sex: Female

DRUGS (4)
  1. COLAZIDE (CAPSULES) [Suspect]
     Indication: COLITIS ULCERATIVE
     Dosage: 6.7G/DAILY, ORAL
     Route: 048
     Dates: start: 20020923, end: 20041209
  2. ERYTHROMYCIN [Concomitant]
  3. LOSARTAN POTASSIUM [Concomitant]
  4. VALPROATE [Concomitant]

REACTIONS (4)
  - EOSINOPHILIA [None]
  - INTERSTITIAL LUNG DISEASE [None]
  - MYOCARDITIS [None]
  - PERICARDITIS [None]
